FAERS Safety Report 18641958 (Version 2)
Quarter: 2021Q4

REPORT INFORMATION
  Report Type: Spontaneous
  Country: JP (occurrence: JP)
  Receive Date: 20201221
  Receipt Date: 20211102
  Transmission Date: 20220304
  Serious: Yes (Other)
  Sender: FDA-Public Use
  Company Number: JP-GLAXOSMITHKLINE-JP2020JPN247812

PATIENT
  Age: 69 Year
  Sex: Female

DRUGS (1)
  1. VALACYCLOVIR HYDROCHLORIDE [Suspect]
     Active Substance: VALACYCLOVIR HYDROCHLORIDE
     Indication: Herpes zoster
     Dosage: 3000 MG/DAY
     Route: 048

REACTIONS (10)
  - Toxic encephalopathy [Unknown]
  - Acute kidney injury [Recovering/Resolving]
  - Renal tubular disorder [Unknown]
  - Altered state of consciousness [Unknown]
  - Hallucination [Unknown]
  - Asterixis [Unknown]
  - Nephropathy toxic [Recovering/Resolving]
  - Metabolic acidosis [Unknown]
  - Dyslalia [Unknown]
  - Dyskinesia [Unknown]
